FAERS Safety Report 7250475-8 (Version None)
Quarter: 2011Q1

REPORT INFORMATION
  Report Type: 
  Country: None (occurrence: None)
  Receive Date: 20110119
  Receipt Date: 20110111
  Transmission Date: 20110831
  Serious: Yes (Other)
  Sender: FDA-Public Use
  Company Number: 111335

PATIENT
  Age: 50 Year
  Sex: Female

DRUGS (2)
  1. BUTORPHANOL TARTRATE [Suspect]
     Indication: ANAESTHESIA
     Dosage: 1ML/SINGLE CAUDAL INJECTION IN 0.9% SODIUM
  2. BUTORPHANOL TARTRATE [Suspect]
     Indication: SPINAL FUSION SURGERY
     Dosage: 1ML/SINGLE CAUDAL INJECTION IN 0.9% SODIUM

REACTIONS (3)
  - MEDICATION ERROR [None]
  - PARAPLEGIA [None]
  - WRONG TECHNIQUE IN DRUG USAGE PROCESS [None]
